FAERS Safety Report 5256786-X (Version None)
Quarter: 2007Q1

REPORT INFORMATION
  Report Type: 
  Country: None (occurrence: None)
  Receive Date: 20070302
  Receipt Date: 20070222
  Transmission Date: 20070707
  Serious: Yes (Death, Hospitalization, Other)
  Sender: FDA-Public Use
  Company Number: 163-21880-06120345

PATIENT
  Age: 85 Year
  Sex: Male
  Weight: 78.0187 kg

DRUGS (5)
  1. REVLIMID [Suspect]
     Indication: MULTIPLE MYELOMA
     Dosage: 15 MG, X 21 DAYS, ORAL
     Route: 048
     Dates: start: 20060901, end: 20061001
  2. DEXAMETHASONE TAB [Suspect]
     Indication: MULTIPLE MYELOMA
     Dates: start: 20061005
  3. ARANESP [Concomitant]
  4. ACYCLOVIR [Concomitant]
  5. METOPROLOL TARTRATE [Concomitant]

REACTIONS (7)
  - CHILLS [None]
  - DISEASE PROGRESSION [None]
  - HAEMATURIA [None]
  - NECK PAIN [None]
  - PYREXIA [None]
  - RENAL FAILURE [None]
  - TREMOR [None]
